FAERS Safety Report 19836008 (Version 1)
Quarter: 2021Q3

REPORT INFORMATION
  Report Type: Spontaneous
  Country: DE (occurrence: DE)
  Receive Date: 20210915
  Receipt Date: 20210915
  Transmission Date: 20211014
  Serious: Yes (Hospitalization)
  Sender: FDA-Public Use
  Company Number: DE-MYLANLABS-2021M1061666

PATIENT
  Age: 69 Year
  Sex: Female

DRUGS (14)
  1. METHOTREXATE (METHOTREXATE SODIUM) [Concomitant]
     Active Substance: METHOTREXATE SODIUM
     Dosage: 12.5 IE / WOCHE, PAUSIERT, INJEKTIONS?/INFUSIONSLOSUNG
     Route: 058
  2. METOPROLOL. [Concomitant]
     Active Substance: METOPROLOL
     Dosage: 47.5 MG, 1?0?1?0
  3. PREDNISOLONE. [Suspect]
     Active Substance: PREDNISOLONE
     Indication: PRODUCT USED FOR UNKNOWN INDICATION
     Dosage: 7.5 MG, 1?0?0?0
  4. EZETIMIB MEPHA TEVA [Concomitant]
     Dosage: 10 MG, 0?0?1?0
  5. FOLSAEURE [Concomitant]
     Active Substance: FOLIC ACID
     Dosage: 5 MG, PAUSIERT
  6. CLOPIDOGREL [Concomitant]
     Active Substance: CLOPIDOGREL BISULFATE
     Dosage: 75 MG, 1?0?0?0
  7. ASPIRIN. [Concomitant]
     Active Substance: ASPIRIN
     Dosage: 100 MG, 0?1?0?0
  8. PANTOPRAZOL                        /01263201/ [Concomitant]
     Active Substance: PANTOPRAZOLE
     Dosage: 40 MG, 1?0?0?0
  9. AMLODIPIN                          /00972401/ [Concomitant]
     Active Substance: AMLODIPINE BESYLATE
     Dosage: 5 MG, 1?0?0?0
  10. IBANDRONATE SODIUM. [Concomitant]
     Active Substance: IBANDRONATE SODIUM
     Dosage: UNK
  11. COTRIM FORTE [Concomitant]
     Active Substance: SULFAMETHOXAZOLE\TRIMETHOPRIM
     Dosage: 800|160 MG, 1?0?1?0 SEIT 26012021
  12. NALOXONE HYDROCHLORIDE/TILIDINE HYDROCHLORIDE [Suspect]
     Active Substance: NALOXONE HYDROCHLORIDE\TILIDINE HYDROCHLORIDE
     Indication: PRODUCT USED FOR UNKNOWN INDICATION
     Dosage: 4|50 MG, 1?0?1?0
  13. ATORVASTATIN [Concomitant]
     Active Substance: ATORVASTATIN
     Dosage: 20 MG, 1?0?0?0
  14. COLECALCIFEROL [Concomitant]
     Active Substance: CHOLECALCIFEROL
     Dosage: 20000 IE / WOCHE, 1 X

REACTIONS (3)
  - Constipation [Unknown]
  - Abdominal pain lower [Unknown]
  - Flank pain [Unknown]
